FAERS Safety Report 7930135-8 (Version None)
Quarter: 2011Q4

REPORT INFORMATION
  Report Type: 
  Country: None (occurrence: None)
  Receive Date: 20111121
  Receipt Date: 20111109
  Transmission Date: 20120403
  Serious: Yes (Other)
  Sender: FDA-Public Use
  Company Number: JP-PFIZER INC-2011127469

PATIENT
  Age: 57 Year
  Sex: Male
  Weight: 58 kg

DRUGS (8)
  1. CAMPTOSAR [Suspect]
     Indication: COLORECTAL CANCER
     Dosage: 248 MG/BODY (154 MG/M2)
     Route: 041
     Dates: start: 20091215, end: 20100114
  2. FLUOROURACIL [Concomitant]
     Indication: COLORECTAL CANCER
     Dosage: 662 MG/BODY (411.2 MG/M2)
     Route: 040
     Dates: start: 20091215, end: 20100114
  3. FLUOROURACIL [Concomitant]
     Dosage: 496 MG, (308.1 MG/M2)
     Route: 040
     Dates: start: 20100215, end: 20100308
  4. FLUOROURACIL [Concomitant]
     Dosage: 3312 MG/BODY/D1-2 (2057.1 MG/M2/D1-2)
     Route: 041
     Dates: start: 20100215, end: 20100308
  5. AVASTIN [Concomitant]
     Indication: COLORECTAL CANCER
     Dosage: 580 MG/BODY
     Route: 041
     Dates: start: 20091215, end: 20100308
  6. FLUOROURACIL [Concomitant]
     Dosage: 3974 MG/BODY/D1-2 (2468.3 MG/M2/D1-2)
     Route: 041
     Dates: start: 20091215, end: 20100114
  7. CAMPTOSAR [Suspect]
     Dosage: 198 MG, (123 MG/M2)
     Route: 041
     Dates: start: 20100215, end: 20100308
  8. LEVOLEUCOVORIN CALCIUM [Concomitant]
     Indication: COLORECTAL CANCER
     Dosage: 331 MG/BODY (205.6 MG/M2)
     Route: 041
     Dates: start: 20091215, end: 20100308

REACTIONS (2)
  - MALAISE [None]
  - HAEMOGLOBIN DECREASED [None]
